FAERS Safety Report 15005864 (Version 1)
Quarter: 2018Q2

REPORT INFORMATION
  Report Type: Spontaneous
  Country: FR (occurrence: FR)
  Receive Date: 20180613
  Receipt Date: 20180613
  Transmission Date: 20180711
  Serious: Yes (Other)
  Sender: FDA-Public Use
  Company Number: FR-MYLANLABS-2018M1038716

PATIENT
  Age: 54 Year

DRUGS (3)
  1. VANCOMYCIN [Suspect]
     Active Substance: VANCOMYCIN
     Indication: DEVICE RELATED INFECTION
     Dosage: 2.5 G/DAY
     Route: 042
  2. CILASTATIN/IMIPENEM [Suspect]
     Active Substance: CILASTATIN SODIUM\IMIPENEM
     Indication: DEVICE RELATED INFECTION
     Dosage: 3 G/DAY
     Route: 042
  3. FOSFOMYCIN [Suspect]
     Active Substance: FOSFOMYCIN
     Indication: DEVICE RELATED INFECTION
     Dosage: 12 G/DAY
     Route: 042

REACTIONS (2)
  - No adverse event [Unknown]
  - Drug ineffective [Unknown]
